FAERS Safety Report 13012961 (Version 1)
Quarter: 2016Q4

REPORT INFORMATION
  Report Type: Spontaneous
  Country: US (occurrence: US)
  Receive Date: 20161208
  Receipt Date: 20161208
  Transmission Date: 20170207
  Serious: No
  Sender: FDA-Public Use
  Company Number: None

PATIENT
  Age: 23 Year
  Sex: Female
  Weight: 49.5 kg

DRUGS (1)
  1. ESCITALOPRAM [Suspect]
     Active Substance: ESCITALOPRAM OXALATE
     Indication: DEPRESSION
     Dosage: ?          QUANTITY:1 TABLET(S);?
     Route: 048
     Dates: start: 20160215, end: 20161112

REACTIONS (9)
  - Abdominal pain upper [None]
  - Dizziness [None]
  - Paraesthesia [None]
  - Abdominal discomfort [None]
  - Nausea [None]
  - Bedridden [None]
  - Activities of daily living impaired [None]
  - Facial paralysis [None]
  - Influenza [None]

NARRATIVE: CASE EVENT DATE: 20161104
